FAERS Safety Report 21734236 (Version 2)
Quarter: 2023Q2

REPORT INFORMATION
  Report Type: Other
  Country: FR (occurrence: None)
  Receive Date: 20221215
  Receipt Date: 20230626
  Transmission Date: 20230722
  Serious: Yes (Death)
  Sender: FDA-Public Use
  Company Number: FR-ROCHE-3239357

PATIENT

DRUGS (2)
  1. BEVACIZUMAB [Suspect]
     Active Substance: BEVACIZUMAB
     Indication: Colorectal cancer metastatic
     Dosage: ON DAY 1 OF EACH 21-DAY CYCLE
     Route: 042
  2. CAPECITABINE [Suspect]
     Active Substance: CAPECITABINE
     Indication: Colorectal cancer metastatic
     Dosage: STARTING DOSE OF 1000 MG/M^2 OR 1250 MG/M^2 ON DAYS 1-14
     Route: 048

REACTIONS (4)
  - Neutropenia [Fatal]
  - Thrombocytopenia [Fatal]
  - Lymphopenia [Fatal]
  - Myelosuppression [Fatal]
